FAERS Safety Report 9781617 (Version 3)
Quarter: 2014Q2

REPORT INFORMATION
  Report Type: Other
  Country: US (occurrence: US)
  Receive Date: 20131224
  Receipt Date: 20140522
  Transmission Date: 20141212
  Serious: Yes (Hospitalization, Other)
  Sender: FDA-Public Use
  Company Number: US-ACORDA-ACO_100869_2013

PATIENT
  Age: 62 Year
  Sex: Female
  Weight: 78.46 kg

DRUGS (4)
  1. AMPYRA [Suspect]
     Indication: GAIT DISTURBANCE
     Dosage: 10 MG, BID
     Route: 048
     Dates: start: 20130918, end: 20130930
  2. AMPYRA [Suspect]
     Dosage: 10 MG, QD
     Route: 048
     Dates: start: 20130930
  3. CORTICOSTEROIDS [Suspect]
     Indication: PRODUCT USED FOR UNKNOWN INDICATION
     Dosage: UNK
     Route: 042
  4. TECFIDERA [Concomitant]
     Indication: MULTIPLE SCLEROSIS
     Dosage: 240 MG, BID
     Route: 065

REACTIONS (4)
  - Vomiting [Recovered/Resolved]
  - Blood glucose increased [Recovered/Resolved]
  - Multiple sclerosis [Recovering/Resolving]
  - Muscle strain [Recovered/Resolved]
